FAERS Safety Report 17781411 (Version 1)
Quarter: 2020Q2

REPORT INFORMATION
  Report Type: Spontaneous
  Country: HU (occurrence: HU)
  Receive Date: 20200513
  Receipt Date: 20200513
  Transmission Date: 20200714
  Serious: Yes (Other)
  Sender: FDA-Public Use
  Company Number: HU-B.I. PHARMACEUTICALS,INC./RIDGEFIELD-2020-BI-022999

PATIENT

DRUGS (1)
  1. OFEV [Suspect]
     Active Substance: NINTEDANIB
     Indication: IDIOPATHIC PULMONARY FIBROSIS
     Route: 065

REACTIONS (10)
  - Hepatic enzyme increased [Unknown]
  - Idiopathic pulmonary fibrosis [Unknown]
  - Hepatic fibrosis [Unknown]
  - Diarrhoea [Unknown]
  - Decreased appetite [Unknown]
  - Weight decreased [Unknown]
  - Hepatitis C [Unknown]
  - Flatulence [Unknown]
  - Abdominal discomfort [Unknown]
  - Rash [Recovered/Resolved]
